FAERS Safety Report 5588354-4 (Version None)
Quarter: 2008Q1

REPORT INFORMATION
  Report Type: 
  Country: None (occurrence: None)
  Receive Date: 20080111
  Receipt Date: 20071018
  Transmission Date: 20080703
  Serious: No
  Sender: FDA-Public Use
  Company Number: A0685933A

PATIENT
  Age: 46 Year
  Sex: Female
  Weight: 64.1 kg

DRUGS (13)
  1. TYKERB [Suspect]
     Indication: BREAST CANCER
     Dosage: 1250MG PER DAY
     Route: 048
     Dates: start: 20070405
  2. LORAZEPAM [Concomitant]
  3. CALCIUM + D [Concomitant]
  4. ZOMETA [Concomitant]
  5. COMPAZINE [Concomitant]
  6. ALEVE [Concomitant]
  7. COREG [Concomitant]
  8. ABRAXANE [Concomitant]
  9. EPOGEN [Concomitant]
  10. VALTREX [Concomitant]
  11. IMODIUM [Concomitant]
  12. EXCEDRIN (MIGRAINE) [Concomitant]
  13. BUPIVACAIN [Concomitant]

REACTIONS (5)
  - EMPYEMA DRAINAGE [None]
  - MUSCULOSKELETAL STIFFNESS [None]
  - NAIL DISORDER [None]
  - PAIN IN EXTREMITY [None]
  - SURGERY [None]
